FAERS Safety Report 19781186 (Version 1)
Quarter: 2021Q3

REPORT INFORMATION
  Report Type: Spontaneous
  Country: SE (occurrence: SE)
  Receive Date: 20210902
  Receipt Date: 20210902
  Transmission Date: 20211014
  Serious: Yes (Life-Threatening)
  Sender: FDA-Public Use
  Company Number: SE-PFIZER INC-202101086528

PATIENT
  Age: 30 Year
  Sex: Female
  Weight: 71 kg

DRUGS (1)
  1. CYTOTEC [Suspect]
     Active Substance: MISOPROSTOL
     Indication: ABORTION MISSED
     Dosage: 0.6 MG, SINGLE (AT 0.2 MG, 3 TABLETS)
     Route: 067
     Dates: start: 20210227, end: 20210227

REACTIONS (5)
  - Product use in unapproved indication [Unknown]
  - Anaemia [Recovered/Resolved]
  - Off label use [Unknown]
  - Product use issue [Unknown]
  - Haemorrhage [Recovered/Resolved]

NARRATIVE: CASE EVENT DATE: 20210227
